FAERS Safety Report 4507329-7 (Version None)
Quarter: 2004Q4

REPORT INFORMATION
  Report Type: 
  Country: None (occurrence: None)
  Receive Date: 20041025
  Receipt Date: 20040609
  Transmission Date: 20050328
  Serious: Yes (Other)
  Sender: FDA-Public Use
  Company Number: US-JNJFOC-20040504354

PATIENT
  Age: 58 Year
  Sex: Female
  Weight: 104.3273 kg

DRUGS (11)
  1. REMICADE [Suspect]
     Indication: RHEUMATOID ARTHRITIS
     Dosage: 500 MG, INTRAVENOUS
     Route: 042
     Dates: start: 20040511
  2. LAMICTAL [Concomitant]
  3. EVOXAC [Concomitant]
  4. EFFEXOR [Concomitant]
  5. METHOTREXATE SODIUM [Concomitant]
  6. ARAVA [Concomitant]
  7. ATENOLOL [Concomitant]
  8. FOLIC ACID [Concomitant]
  9. ULTRAM [Concomitant]
  10. RELAFEN [Concomitant]
  11. ESTROGEN (ESTROGEN NOS) [Concomitant]

REACTIONS (3)
  - CHEST DISCOMFORT [None]
  - DYSPNOEA [None]
  - SYNCOPE [None]
